FAERS Safety Report 19175550 (Version 2)
Quarter: 2021Q2

REPORT INFORMATION
  Report Type: Spontaneous
  Country: NL (occurrence: NL)
  Receive Date: 20210423
  Receipt Date: 20210624
  Transmission Date: 20210717
  Serious: Yes (Hospitalization)
  Sender: FDA-Public Use
  Company Number: NVSC2021NL091045

PATIENT
  Sex: Male

DRUGS (7)
  1. PREDNISOLONE. [Suspect]
     Active Substance: PREDNISOLONE
     Dosage: MATERNAL DOSE OF 15 MG/DAY ON HOSPITAL DAY 31?34
     Route: 064
  2. BETAMETHASONE. [Suspect]
     Active Substance: BETAMETHASONE
     Indication: FOETAL EXPOSURE DURING PREGNANCY
     Dosage: MATERNAL DOSE OF 11.4 MG FOR TWO DAYS (HOSPITAL DAYS 18 AND 19)
     Route: 064
  3. MEROPENEM. [Suspect]
     Active Substance: MEROPENEM
     Indication: FOETAL EXPOSURE DURING PREGNANCY
     Dosage: MATERNAL DOSE (ON HOSPITAL DAY 27)
     Route: 064
  4. PREDNISOLONE. [Suspect]
     Active Substance: PREDNISOLONE
     Indication: FOETAL EXPOSURE DURING PREGNANCY
     Dosage: MATERNAL DOSE OF 60 MG/DAY ON HOSPITAL DAY 20?26
     Route: 064
  5. CIPROFLOXACIN. [Suspect]
     Active Substance: CIPROFLOXACIN
     Indication: FOETAL EXPOSURE DURING PREGNANCY
     Dosage: MATERNAL DOSE (ON HOSPITAL DAY 28)
     Route: 064
  6. PREDNISOLONE. [Suspect]
     Active Substance: PREDNISOLONE
     Dosage: MATERNAL DOSE OF 30 MG/DAY ON HOSPITAL DAY 27?30
     Route: 064
  7. FLUCLOXACILLIN [Suspect]
     Active Substance: FLUCLOXACILLIN
     Indication: FOETAL EXPOSURE DURING PREGNANCY
     Dosage: MATERNAL DOSE (ON HOSPITAL DAY 28)
     Route: 064

REACTIONS (2)
  - Foetal exposure during pregnancy [Unknown]
  - Premature baby [Unknown]
